FAERS Safety Report 5072886-1 (Version None)
Quarter: 2006Q3

REPORT INFORMATION
  Report Type: 
  Country: None (occurrence: None)
  Receive Date: 20060802
  Receipt Date: 20060720
  Transmission Date: 20061208
  Serious: Yes (Hospitalization)
  Sender: FDA-Public Use
  Company Number: 2006AD000051

PATIENT
  Age: 6 Year
  Sex: Female
  Weight: 26.989 kg

DRUGS (1)
  1. KEFLEX [Suspect]
     Indication: BRONCHIOLITIS
     Dosage: PO
     Route: 048

REACTIONS (2)
  - DRUG INEFFECTIVE [None]
  - PNEUMONIA [None]
